FAERS Safety Report 8266890-X (Version None)
Quarter: 2012Q2

REPORT INFORMATION
  Report Type: 
  Country: None (occurrence: None)
  Receive Date: 20120404
  Receipt Date: 20120404
  Transmission Date: 20120825
  Serious: No
  Sender: FDA-Public Use
  Company Number: None

PATIENT
  Sex: Female

DRUGS (1)
  1. MICRHOGAM ULTRA-FILTERED PLUS [Suspect]
     Dosage: 50 UG
     Dates: start: 20120210

REACTIONS (2)
  - LARYNGEAL OEDEMA [None]
  - URTICARIA [None]
